FAERS Safety Report 9937621 (Version 2)
Quarter: 2014Q1

REPORT INFORMATION
  Report Type: Spontaneous
  Country: US (occurrence: US)
  Receive Date: 20140303
  Receipt Date: 20140307
  Transmission Date: 20141002
  Serious: No
  Sender: FDA-Public Use
  Company Number: US-009507513-1402USA013365

PATIENT
  Age: 86 Year
  Sex: Female

DRUGS (1)
  1. NASONEX [Suspect]
     Indication: RHINORRHOEA
     Dosage: 50MCG, TWO SPRAYS IN EACH NOSTRIL DAILY IN THE MORNING
     Route: 045
     Dates: start: 201401

REACTIONS (5)
  - Arthropathy [Not Recovered/Not Resolved]
  - Nasal disorder [Recovering/Resolving]
  - Rhinorrhoea [Recovering/Resolving]
  - Respiratory disorder [Recovering/Resolving]
  - Increased upper airway secretion [Recovering/Resolving]
